FAERS Safety Report 25231169 (Version 1)
Quarter: 2025Q2

REPORT INFORMATION
  Report Type: Spontaneous
  Country: US (occurrence: None)
  Receive Date: 20250423
  Receipt Date: 20250423
  Transmission Date: 20250716
  Serious: Yes (Other)
  Sender: FDA-CTU
  Company Number: None

PATIENT
  Age: 63 Year
  Sex: Female

DRUGS (9)
  1. EZETIMIBE [Suspect]
     Active Substance: EZETIMIBE
     Dosage: FREQUENCY : DAILY;?
     Route: 048
     Dates: start: 20250205, end: 20250228
  2. PRAVASTATIN [Concomitant]
     Active Substance: PRAVASTATIN
     Dates: start: 20230502
  3. PRAVASTATIN [Concomitant]
     Active Substance: PRAVASTATIN
     Dates: start: 20241031
  4. SYNTHROID [Concomitant]
     Active Substance: LEVOTHYROXINE SODIUM
     Dates: start: 20250130
  5. MELOXICAM [Concomitant]
     Active Substance: MELOXICAM
     Dates: start: 20240717
  6. GABAPENTIN [Concomitant]
     Active Substance: GABAPENTIN
     Dates: start: 20230502
  7. pravastatin 80 [Concomitant]
     Dates: start: 20250123, end: 20250423
  8. SYNTHROID [Concomitant]
     Active Substance: LEVOTHYROXINE SODIUM
     Dates: start: 20240523, end: 20250130
  9. TOPIRAMATE [Concomitant]
     Active Substance: TOPIRAMATE
     Dates: start: 20230502

REACTIONS (2)
  - Muscle spasms [None]
  - Therapy cessation [None]

NARRATIVE: CASE EVENT DATE: 20250212
